FAERS Safety Report 16326030 (Version 2)
Quarter: 2019Q2

REPORT INFORMATION
  Report Type: Report from Study
  Country: GR (occurrence: GR)
  Receive Date: 20190517
  Receipt Date: 20190530
  Transmission Date: 20190711
  Serious: Yes (Other)
  Sender: FDA-Public Use
  Company Number: PHHY2019GR111030

PATIENT
  Age: 88 Year
  Sex: Male
  Weight: 78 kg

DRUGS (1)
  1. ENTRESTO [Suspect]
     Active Substance: SACUBITRIL\VALSARTAN
     Indication: CARDIAC FAILURE
     Dosage: 50 MG (24/26 MG), BID
     Route: 048
     Dates: start: 20180308

REACTIONS (2)
  - Hypotension [Unknown]
  - Dry gangrene [Recovering/Resolving]

NARRATIVE: CASE EVENT DATE: 20190327
